FAERS Safety Report 4378236-8 (Version None)
Quarter: 2004Q2

REPORT INFORMATION
  Report Type: 
  Country: None (occurrence: None)
  Receive Date: 20040601
  Receipt Date: 20040218
  Transmission Date: 20050107
  Serious: No
  Sender: FDA-Public Use
  Company Number: WAES 0402USA01609

PATIENT
  Age: 53 Year
  Sex: Male
  Weight: 77.1115 kg

DRUGS (4)
  1. ZETIA [Suspect]
     Dosage: PO
     Route: 048
  2. LAMICTAL [Concomitant]
  3. ZOCOR [Concomitant]
  4. ASPIRIN [Concomitant]

REACTIONS (1)
  - GASTROOESOPHAGEAL REFLUX DISEASE [None]
